FAERS Safety Report 17796001 (Version 13)
Quarter: 2021Q2

REPORT INFORMATION
  Report Type: Report from Study
  Country: US (occurrence: US)
  Receive Date: 20200516
  Receipt Date: 20210524
  Transmission Date: 20210716
  Serious: Yes (Hospitalization, Other)
  Sender: FDA-Public Use
  Company Number: NVSC2020US132698

PATIENT
  Age: 55 Year
  Sex: Male
  Weight: 108.84 kg

DRUGS (47)
  1. ENTRESTO [Suspect]
     Active Substance: SACUBITRIL\VALSARTAN
     Indication: PRODUCT USED FOR UNKNOWN INDICATION
     Dosage: 100 MG, BID (49/51 MG)
     Route: 065
     Dates: start: 202003
  2. OXYCODONE AND ACETAMINOPHEN [Concomitant]
     Active Substance: ACETAMINOPHEN\OXYCODONE HYDROCHLORIDE
     Indication: PAIN
     Dosage: 1 DF, Q6H (10 TAB)
     Route: 048
     Dates: start: 20200526, end: 20200602
  3. GLUCAGON RECOMBINANT [Concomitant]
     Active Substance: GLUCAGON
     Indication: PRODUCT USED FOR UNKNOWN INDICATION
     Dosage: UNK UNK, QD (AS PER NEEDED HYPOGLYCEMIA PROTOCOL)
     Route: 030
     Dates: start: 20200523
  4. LANTUS [Concomitant]
     Active Substance: INSULIN GLARGINE
     Indication: PRODUCT USED FOR UNKNOWN INDICATION
     Dosage: 0.25 ML, BID
     Route: 058
     Dates: start: 20200523, end: 20200622
  5. LACTOBACILLUS [Concomitant]
     Active Substance: LACTOBACILLUS ACIDOPHILUS
     Indication: PRODUCT USED FOR UNKNOWN INDICATION
     Dosage: 2 DF, QD
     Route: 048
     Dates: start: 20200523
  6. MORPHINE [Concomitant]
     Active Substance: MORPHINE
     Dosage: UNK, Q4H
     Route: 042
     Dates: start: 20200524, end: 20200531
  7. ENTRESTO [Suspect]
     Active Substance: SACUBITRIL\VALSARTAN
     Dosage: UNK
     Route: 048
     Dates: start: 20200423
  8. DEXTROSE. [Concomitant]
     Active Substance: DEXTROSE
     Indication: PRODUCT USED FOR UNKNOWN INDICATION
     Dosage: 12.5 G, QD (25 ML) AS PER HYPOGLYCEMIA PROTOCOL
     Route: 042
     Dates: start: 20200523
  9. FUROSEMIDE. [Concomitant]
     Active Substance: FUROSEMIDE
     Indication: PRODUCT USED FOR UNKNOWN INDICATION
     Dosage: 1 DF, BID
     Route: 048
     Dates: start: 20200524, end: 20200623
  10. HUMALOG [Concomitant]
     Active Substance: INSULIN LISPRO
     Indication: PRODUCT USED FOR UNKNOWN INDICATION
     Dosage: UNK, BID (INSULIN LISPROLOW DOSAGE COVERAGE 10 ML VIAL) (BEFORE MEALS AND BED TIME)
     Route: 058
     Dates: start: 20200525, end: 20200624
  11. SODIUM CHLORIDE. [Concomitant]
     Active Substance: SODIUM CHLORIDE
     Indication: PRODUCT USED FOR UNKNOWN INDICATION
     Dosage: 100 ML, QH
     Route: 042
     Dates: start: 20200523, end: 20200622
  12. ASPIRIN. [Concomitant]
     Active Substance: ASPIRIN
     Indication: PRODUCT USED FOR UNKNOWN INDICATION
     Dosage: 1 DF, UNKNOWN
     Route: 048
     Dates: start: 20200523, end: 20200622
  13. JARDIANCE [Concomitant]
     Active Substance: EMPAGLIFLOZIN
     Indication: PRODUCT USED FOR UNKNOWN INDICATION
     Dosage: 1 DF (QAM EVERY MORNING)
     Route: 048
  14. HEPARIN [Concomitant]
     Active Substance: HEPARIN SODIUM
     Indication: PRODUCT USED FOR UNKNOWN INDICATION
     Dosage: UNK, Q8H (5000 UNITS)
     Route: 058
     Dates: start: 20200523, end: 20200622
  15. LEVEMIR [Concomitant]
     Active Substance: INSULIN DETEMIR
     Indication: PRODUCT USED FOR UNKNOWN INDICATION
     Dosage: UNK, BID (35 UNITS) (100UNITS/ ML)
     Route: 058
  16. SALINE [Concomitant]
     Active Substance: SODIUM CHLORIDE
     Dosage: 5 ML, Q12H
     Route: 042
     Dates: start: 20200523
  17. ALLOPURINOL. [Concomitant]
     Active Substance: ALLOPURINOL
     Indication: PRODUCT USED FOR UNKNOWN INDICATION
     Dosage: 300 MG, QD (AS NEEDED)
     Route: 048
     Dates: start: 20200523, end: 20200621
  18. MAGNESIUM SULFATE. [Concomitant]
     Active Substance: MAGNESIUM SULFATE
     Indication: PRODUCT USED FOR UNKNOWN INDICATION
     Dosage: UNK (IV PIGGY BANK) (INFUSED OVER 30 MINS)
     Route: 042
     Dates: start: 20200524, end: 20200524
  19. MEBROFENIN. [Concomitant]
     Active Substance: MEBROFENIN
     Indication: PRODUCT USED FOR UNKNOWN INDICATION
     Dosage: UNK
     Route: 065
     Dates: start: 20200523, end: 20200523
  20. PROTONIX [Concomitant]
     Active Substance: PANTOPRAZOLE SODIUM
     Dosage: 1 DF, BID (8AM?8PM)
     Route: 048
  21. PROTONIX [Concomitant]
     Active Substance: PANTOPRAZOLE SODIUM
     Dosage: 1 DF, BID (8AM?8PM)
     Route: 048
     Dates: start: 20200526, end: 20200622
  22. SPIRONOLACTONE. [Concomitant]
     Active Substance: SPIRONOLACTONE
     Indication: PRODUCT USED FOR UNKNOWN INDICATION
     Dosage: 1 DF, QD
     Route: 048
     Dates: start: 20200523, end: 20200622
  23. SUCRALFATE. [Concomitant]
     Active Substance: SUCRALFATE
     Indication: PRODUCT USED FOR UNKNOWN INDICATION
     Dosage: 1 DF (BEFORE MEALS AND BED TIME)
     Route: 048
     Dates: start: 20200526
  24. ACETAMINOPHEN. [Concomitant]
     Active Substance: ACETAMINOPHEN
     Indication: PAIN
     Dosage: 650 MG, Q6H (2 TAB)
     Route: 048
     Dates: start: 20200523, end: 20200622
  25. MORPHINE [Concomitant]
     Active Substance: MORPHINE
     Indication: PAIN
     Dosage: UNK, QD
     Route: 042
     Dates: start: 20200524
  26. SALINE [Concomitant]
     Active Substance: SODIUM CHLORIDE
     Indication: PRODUCT USED FOR UNKNOWN INDICATION
     Dosage: 5 ML, UNKNOWN
     Route: 042
     Dates: start: 20200523
  27. FAMOTIDINE. [Concomitant]
     Active Substance: FAMOTIDINE
     Indication: PRODUCT USED FOR UNKNOWN INDICATION
     Dosage: 40 MG, QD
     Route: 048
  28. CARVEDILOL. [Concomitant]
     Active Substance: CARVEDILOL
     Indication: PRODUCT USED FOR UNKNOWN INDICATION
     Dosage: 1 DF, BID
     Route: 048
     Dates: start: 20200523, end: 20200622
  29. CLOPIDOGREL [Concomitant]
     Active Substance: CLOPIDOGREL BISULFATE
     Indication: PRODUCT USED FOR UNKNOWN INDICATION
     Dosage: 1 DF, QD
     Route: 065
     Dates: start: 20200523, end: 20200622
  30. DEXTROSE. [Concomitant]
     Active Substance: DEXTROSE
     Dosage: 25 G, QD (50 ML) AS PER HYPOGLYCEMIA PROTOCOL
     Route: 042
     Dates: start: 20200523
  31. LASIX [Concomitant]
     Active Substance: FUROSEMIDE
     Indication: PRODUCT USED FOR UNKNOWN INDICATION
     Dosage: 40 MG, Q12H
     Route: 065
     Dates: start: 20200523, end: 20200622
  32. TORADOL [Concomitant]
     Active Substance: KETOROLAC TROMETHAMINE
     Indication: PRODUCT USED FOR UNKNOWN INDICATION
     Dosage: 30 MG, QD
     Route: 042
     Dates: start: 20200523, end: 20200523
  33. LACTATED RINGERS SOLUTION [Concomitant]
     Active Substance: CALCIUM CHLORIDE\POTASSIUM CHLORIDE\SODIUM CHLORIDE\SODIUM LACTATE
     Indication: PRODUCT USED FOR UNKNOWN INDICATION
     Dosage: UNK
     Route: 042
     Dates: start: 20200526, end: 20200526
  34. ENTRESTO [Suspect]
     Active Substance: SACUBITRIL\VALSARTAN
     Dosage: 1 DF, BID (97/103 MG)
     Route: 048
     Dates: start: 20200523, end: 20200622
  35. COLACE [Concomitant]
     Active Substance: DOCUSATE SODIUM
     Indication: PRODUCT USED FOR UNKNOWN INDICATION
     Dosage: 1 DF, BID
     Route: 048
     Dates: start: 20200523, end: 20200622
  36. HUMALOG [Concomitant]
     Active Substance: INSULIN LISPRO
     Dosage: UNK, Q6H (INSULIN LISPRO LOW DOSAGE COVERAGE 10 ML VIAL
     Route: 058
     Dates: start: 20200523, end: 20200622
  37. PANTOPRAZOLE [Concomitant]
     Active Substance: PANTOPRAZOLE
     Indication: PRODUCT USED FOR UNKNOWN INDICATION
     Dosage: 1 DF, QD
     Route: 048
  38. PROTONIX [Concomitant]
     Active Substance: PANTOPRAZOLE SODIUM
     Indication: PRODUCT USED FOR UNKNOWN INDICATION
     Dosage: 1 DF, BID (8AM?8PM)
     Route: 048
  39. DIPRIVAN [Concomitant]
     Active Substance: PROPOFOL
     Indication: PRODUCT USED FOR UNKNOWN INDICATION
     Dosage: UNK
     Route: 042
     Dates: start: 20200526, end: 20200526
  40. LISINOPRIL. [Suspect]
     Active Substance: LISINOPRIL
     Indication: PRODUCT USED FOR UNKNOWN INDICATION
     Dosage: UNK
     Route: 065
  41. INSULIN [Suspect]
     Active Substance: INSULIN NOS
     Indication: PRODUCT USED FOR UNKNOWN INDICATION
     Dosage: UNK
     Route: 065
  42. OFIRMEV [Concomitant]
     Active Substance: ACETAMINOPHEN
     Indication: PRODUCT USED FOR UNKNOWN INDICATION
     Dosage: 1 DF (INFUSE OVER 15 MINS)
     Route: 042
     Dates: start: 20200524, end: 20200524
  43. DICYCLOMINE [Concomitant]
     Active Substance: DICYCLOMINE HYDROCHLORIDE
     Indication: PRODUCT USED FOR UNKNOWN INDICATION
     Dosage: 20 MG, QID
     Route: 048
     Dates: start: 20200523, end: 20200622
  44. GLUCOSE [Concomitant]
     Active Substance: DEXTROSE
     Indication: PRODUCT USED FOR UNKNOWN INDICATION
     Dosage: UNK, QD (AS PER NEEDED HYPOGLYCEMIA PROTOCOL)
     Route: 048
     Dates: start: 20200523
  45. GUAIFENESIN. [Concomitant]
     Active Substance: GUAIFENESIN
     Indication: PRODUCT USED FOR UNKNOWN INDICATION
     Dosage: UNK
     Route: 065
  46. POTASSIUM CHLORIDE. [Concomitant]
     Active Substance: POTASSIUM CHLORIDE
     Indication: PRODUCT USED FOR UNKNOWN INDICATION
     Dosage: 1 DF, QD
     Route: 048
     Dates: start: 20200523, end: 20200622
  47. ROSUVASTATIN. [Concomitant]
     Active Substance: ROSUVASTATIN
     Indication: PRODUCT USED FOR UNKNOWN INDICATION
     Dosage: 1 DF, QHS
     Route: 048
     Dates: start: 20200523, end: 20200622

REACTIONS (39)
  - Hypertension [Unknown]
  - Bowel movement irregularity [Unknown]
  - Blood glucose abnormal [Unknown]
  - Nausea [Recovered/Resolved with Sequelae]
  - Ejection fraction decreased [Unknown]
  - Tooth injury [Unknown]
  - Pollakiuria [Unknown]
  - Appetite disorder [Unknown]
  - Blood potassium decreased [Unknown]
  - Sleep disorder [Unknown]
  - Dizziness [Unknown]
  - Coronavirus test [Unknown]
  - Fluid retention [Unknown]
  - Rhinorrhoea [Unknown]
  - Abdominal pain [Unknown]
  - Pulmonary congestion [Unknown]
  - Chest discomfort [Recovering/Resolving]
  - Dysstasia [Recovering/Resolving]
  - Restlessness [Unknown]
  - Dehydration [Unknown]
  - Headache [Unknown]
  - Malaise [Unknown]
  - Diabetes mellitus [Not Recovered/Not Resolved]
  - Lung disorder [Recovering/Resolving]
  - Rectal tenesmus [Unknown]
  - Somnolence [Unknown]
  - Tooth loss [Unknown]
  - Renal disorder [Unknown]
  - Cough [Unknown]
  - Head discomfort [Unknown]
  - Product dose omission issue [Recovered/Resolved]
  - Abdominal pain upper [Recovered/Resolved with Sequelae]
  - Abdominal discomfort [Unknown]
  - Regurgitation [Not Recovered/Not Resolved]
  - Feeling abnormal [Unknown]
  - Asthenia [Unknown]
  - Depressed mood [Unknown]
  - Nasopharyngitis [Unknown]
  - Therapeutic response unexpected [Recovering/Resolving]

NARRATIVE: CASE EVENT DATE: 20200501
